FAERS Safety Report 23536136 (Version 1)
Quarter: 2024Q1

REPORT INFORMATION
  Report Type: Spontaneous
  Country: US (occurrence: US)
  Receive Date: 20240219
  Receipt Date: 20240219
  Transmission Date: 20240409
  Serious: Yes (Hospitalization, Other)
  Sender: FDA-Public Use
  Company Number: US-GTI-000159

PATIENT
  Age: 76 Year
  Sex: Female

DRUGS (2)
  1. PREDNISONE [Suspect]
     Active Substance: PREDNISONE
     Indication: Rheumatoid arthritis
     Route: 065
  2. LEFLUNOMIDE [Suspect]
     Active Substance: LEFLUNOMIDE
     Indication: Rheumatoid arthritis
     Route: 065

REACTIONS (10)
  - Pseudomonas infection [Unknown]
  - Cranial nerve disorder [Unknown]
  - Pyrexia [Unknown]
  - Dysphagia [Unknown]
  - Anaemia [Unknown]
  - Candida infection [Unknown]
  - Klebsiella infection [Unknown]
  - CSF glucose decreased [Unknown]
  - Headache [Unknown]
  - CSF protein increased [Unknown]
